FAERS Safety Report 22318795 (Version 1)
Quarter: 2023Q2

REPORT INFORMATION
  Report Type: Report from Study
  Country: US (occurrence: US)
  Receive Date: 20230515
  Receipt Date: 20230515
  Transmission Date: 20230722
  Serious: No
  Sender: FDA-Public Use
  Company Number: US-002147023-NVSC2023US109447

PATIENT
  Sex: Male

DRUGS (6)
  1. COSENTYX [Suspect]
     Active Substance: SECUKINUMAB
     Indication: Psoriasis
     Dosage: 300 MG (150 MG/ML 2 (PENS))
     Route: 058
  2. COSENTYX [Suspect]
     Active Substance: SECUKINUMAB
     Dosage: UNK (ON 25 APR)
     Route: 065
  3. ATORVASTATIN [Suspect]
     Active Substance: ATORVASTATIN
     Indication: Psoriasis
     Dosage: 40 MG
     Route: 048
  4. MELOXICAM [Suspect]
     Active Substance: MELOXICAM
     Indication: Psoriasis
     Dosage: 7.5 MG
     Route: 048
  5. VITAMINS [Suspect]
     Active Substance: VITAMINS
     Indication: Psoriasis
     Dosage: UNK
     Route: 065
  6. PROBIOTICS NOS [Suspect]
     Active Substance: PROBIOTICS NOS
     Indication: Psoriasis
     Dosage: UNK
     Route: 065

REACTIONS (2)
  - Seborrhoeic keratosis [Unknown]
  - Drug ineffective [Unknown]
